FAERS Safety Report 4366592-6 (Version None)
Quarter: 2004Q2

REPORT INFORMATION
  Report Type: 
  Country: None (occurrence: None)
  Receive Date: 20040527
  Receipt Date: 20040423
  Transmission Date: 20050107
  Serious: Yes (Hospitalization, Disabling)
  Sender: FDA-Public Use
  Company Number: JP-GLAXOSMITHKLINE-B0331129A

PATIENT
  Age: 75 Year
  Sex: Female
  Weight: 35.1 kg

DRUGS (11)
  1. VALTREX [Suspect]
     Indication: HERPES ZOSTER
     Dosage: 500MG PER DAY
     Route: 048
     Dates: start: 20040414, end: 20040416
  2. ARASENA-A [Suspect]
     Indication: HERPES ZOSTER
     Dosage: 300MG PER DAY
     Route: 042
     Dates: start: 20040411, end: 20040415
  3. ROCALTROL [Concomitant]
     Indication: OSTEODYSTROPHY
     Dosage: .25MCG PER DAY
     Route: 048
  4. MERISLON [Concomitant]
     Indication: DIZZINESS
     Dosage: 12MG PER DAY
     Route: 048
  5. POLARAMINE [Concomitant]
     Indication: HYPERSENSITIVITY
     Dosage: 6MG PER DAY
     Route: 048
     Dates: start: 20040225, end: 20040421
  6. TANKARU [Concomitant]
     Dosage: 3000MG PER DAY
     Route: 048
  7. MUCOSTA [Concomitant]
     Dosage: 300MG PER DAY
     Route: 048
  8. ACETAMINOPHEN [Concomitant]
     Indication: PAIN
     Dosage: 1.2MG PER DAY
     Route: 048
     Dates: start: 20040412, end: 20040421
  9. MEDICON [Concomitant]
     Indication: COUGH
     Dosage: 30MG PER DAY
     Route: 048
     Dates: start: 20040414, end: 20040416
  10. AMLODIPINE [Concomitant]
     Indication: HYPERTENSION
     Route: 048
  11. HAEMODIALYSIS [Concomitant]
     Route: 065

REACTIONS (13)
  - ABNORMAL BEHAVIOUR [None]
  - ASTERIXIS [None]
  - CEREBELLAR ATAXIA [None]
  - COORDINATION ABNORMAL [None]
  - DELIRIUM [None]
  - GAIT DISTURBANCE [None]
  - HALLUCINATION, VISUAL [None]
  - INSOMNIA [None]
  - INTENTION TREMOR [None]
  - PARKINSON'S DISEASE [None]
  - RESTLESSNESS [None]
  - SPEECH DISORDER [None]
  - TREMOR [None]
